FAERS Safety Report 17797308 (Version 1)
Quarter: 2020Q2

REPORT INFORMATION
  Report Type: Spontaneous
  Country: US (occurrence: US)
  Receive Date: 20200515
  Receipt Date: 20200515
  Transmission Date: 20200714
  Serious: Yes (Hospitalization)
  Sender: FDA-Public Use
  Company Number: None

PATIENT
  Age: 67 Year
  Sex: Male
  Weight: 112.5 kg

DRUGS (5)
  1. JARDIANCE [Concomitant]
     Active Substance: EMPAGLIFLOZIN
     Dates: start: 20200421
  2. METFORMIN XR 500MG [Concomitant]
     Dates: start: 20200421
  3. JANUVIA [Suspect]
     Active Substance: SITAGLIPTIN PHOSPHATE
     Indication: TYPE 2 DIABETES MELLITUS
     Route: 048
     Dates: start: 20181212, end: 20200515
  4. GLIPIZIDE 5MG [Concomitant]
     Active Substance: GLIPIZIDE
     Dates: start: 20171229
  5. DIVALPROEX DR 250MG [Concomitant]
     Active Substance: DIVALPROEX SODIUM
     Dates: start: 20181221, end: 20200508

REACTIONS (10)
  - Constipation [None]
  - Glycosylated haemoglobin increased [None]
  - Splenic vein thrombosis [None]
  - Eructation [None]
  - Abdominal pain [None]
  - Weight decreased [None]
  - Hunger [None]
  - Pancreatitis [None]
  - Gastric disorder [None]
  - Abdominal distension [None]

NARRATIVE: CASE EVENT DATE: 20200504
